FAERS Safety Report 20783558 (Version 2)
Quarter: 2022Q2

REPORT INFORMATION
  Report Type: Report from Study
  Country: IT (occurrence: IT)
  Receive Date: 20220504
  Receipt Date: 20220510
  Transmission Date: 20220720
  Serious: Yes (Other)
  Sender: FDA-Public Use
  Company Number: None

PATIENT
  Age: 54 Year
  Sex: Female

DRUGS (4)
  1. XANAX [Suspect]
     Active Substance: ALPRAZOLAM
     Dosage: 5 G, TOTAL
     Dates: start: 20220410, end: 20220410
  2. IBUPROFEN [Suspect]
     Active Substance: IBUPROFEN
     Dosage: 10 G, TOTAL
     Dates: start: 20220410, end: 20220410
  3. TACHIPIRINA [Suspect]
     Active Substance: ACETAMINOPHEN
     Dosage: 4 G, TOTAL
     Route: 048
     Dates: start: 20220410, end: 20220410
  4. DIENOGEST\ETHINYL ESTRADIOL [Concomitant]
     Active Substance: DIENOGEST\ETHINYL ESTRADIOL

REACTIONS (3)
  - Sopor [Recovering/Resolving]
  - Drug abuse [Unknown]
  - Suicide attempt [Unknown]

NARRATIVE: CASE EVENT DATE: 20220410
